FAERS Safety Report 9929199 (Version 2)
Quarter: 2014Q2

REPORT INFORMATION
  Report Type: Spontaneous
  Country: GB (occurrence: None)
  Receive Date: 20140224
  Receipt Date: 20140429
  Transmission Date: 20141212
  Serious: No
  Sender: FDA-Public Use
  Company Number: GB2014K0445SPO

PATIENT
  Age: 77 Year
  Sex: Female

DRUGS (9)
  1. LANSOPRAZOLE [Suspect]
     Indication: HIATUS HERNIA
     Route: 048
     Dates: start: 20060215, end: 2006
  2. LANSOPRAZOLE [Suspect]
     Indication: COELIAC DISEASE
     Route: 048
     Dates: start: 20060215, end: 2006
  3. BENDROFLUMETHIAZIDE [Concomitant]
  4. CITALOPRAM (CITALOPRAM) [Concomitant]
  5. LEVOTHYROXINE ACTAVIS (LEVOTHYROXINE) [Concomitant]
  6. LISINOPRIL (LISINOPRIL) [Concomitant]
  7. METOCLOPRAMIDE (METOCLOPRAMIDE) [Concomitant]
  8. PARACETAMOL (PARACETAMOL) [Concomitant]
  9. RANITIDINE (RANITIDINE) [Concomitant]

REACTIONS (17)
  - Decreased appetite [None]
  - Sleep disorder [None]
  - Gingival erythema [None]
  - Dyskinesia [None]
  - Nasal congestion [None]
  - Tongue exfoliation [None]
  - Gingival disorder [None]
  - Decreased interest [None]
  - Hyperhidrosis [None]
  - Fatigue [None]
  - Anaemia [None]
  - Somnolence [None]
  - Oral pain [None]
  - Feeling hot [None]
  - Dyskinesia [None]
  - Decreased interest [None]
  - Tremor [None]
